FAERS Safety Report 7326119-3 (Version None)
Quarter: 2011Q1

REPORT INFORMATION
  Report Type: 
  Country: None (occurrence: None)
  Receive Date: 20110216
  Receipt Date: 20110209
  Transmission Date: 20110831
  Serious: Yes (Other)
  Sender: FDA-Public Use
  Company Number: 2011SP004344

PATIENT
  Age: 36 Year
  Sex: Female

DRUGS (1)
  1. IMPLANON [Suspect]
     Indication: CONTRACEPTION
     Dates: start: 20090629

REACTIONS (3)
  - ABORTION SPONTANEOUS [None]
  - PREGNANCY WITH IMPLANT CONTRACEPTIVE [None]
  - DRUG EXPOSURE DURING PREGNANCY [None]
